FAERS Safety Report 8519676-2 (Version None)
Quarter: 2012Q3

REPORT INFORMATION
  Report Type: 
  Country: None (occurrence: None)
  Receive Date: 20120719
  Receipt Date: 20120712
  Transmission Date: 20120928
  Serious: Yes (Hospitalization)
  Sender: FDA-Public Use
  Company Number: US-AMGEN-USASP2012043470

PATIENT
  Age: 63 Year
  Sex: Female

DRUGS (1)
  1. ENBREL [Suspect]
     Indication: RHEUMATOID ARTHRITIS
     Dosage: 50 MG, QWK
     Dates: start: 20091001

REACTIONS (6)
  - INJECTION SITE DISCOMFORT [None]
  - IMPAIRED HEALING [None]
  - SCAB [None]
  - RHEUMATOID ARTHRITIS [None]
  - SKIN GRAFT REJECTION [None]
  - SKIN ULCER [None]
